FAERS Safety Report 8799243 (Version 1)
Quarter: 2012Q4

REPORT INFORMATION
  Report Type: Spontaneous
  Country: US (occurrence: None)
  Receive Date: 20120918
  Receipt Date: 20120918
  Transmission Date: 20130627
  Serious: Yes (Hospitalization)
  Sender: FDA-Public Use
  Company Number: None

PATIENT
  Age: 69 Year
  Sex: Female
  Weight: 65.77 kg

DRUGS (7)
  1. HIZENTRA [Suspect]
     Route: 058
  2. ATENOLOL [Concomitant]
  3. METAPROLOL [Concomitant]
  4. CRESTOR [Concomitant]
  5. ADVAIR [Concomitant]
  6. ALBUTEROL [Concomitant]
  7. ESTRADIOL [Concomitant]

REACTIONS (1)
  - Myocardial infarction [None]
